FAERS Safety Report 5881651-4 (Version None)
Quarter: 2008Q3

REPORT INFORMATION
  Report Type: 
  Country: None (occurrence: None)
  Receive Date: 20080912
  Receipt Date: 20080708
  Transmission Date: 20090109
  Serious: No
  Sender: FDA-Public Use
  Company Number: US-ABBOTT-08P-163-0461604-00

PATIENT
  Sex: Female
  Weight: 59.02 kg

DRUGS (4)
  1. HUMIRA [Suspect]
     Indication: PSORIASIS
     Dosage: 40MG 2 X WEEK FOR 2 WEEKS
     Route: 058
     Dates: start: 20080626
  2. ANTIDEPRESSANTS [Concomitant]
     Indication: DEPRESSION
  3. OTHER ANTIPRURITICS [Concomitant]
     Indication: PRURITUS
  4. IBUPROFEN [Concomitant]
     Indication: PAIN

REACTIONS (1)
  - ACCIDENTAL EXPOSURE [None]
